FAERS Safety Report 8517470-X (Version None)
Quarter: 2012Q3

REPORT INFORMATION
  Report Type: 
  Country: None (occurrence: None)
  Receive Date: 20120718
  Receipt Date: 20120713
  Transmission Date: 20120928
  Serious: No
  Sender: FDA-Public Use
  Company Number: US-009507513-1207USA004494

PATIENT

DRUGS (3)
  1. RIBASPHERE [Concomitant]
     Dosage: UNK, UNKNOWN
  2. VICTRELIS [Suspect]
     Indication: HEPATITIS C
     Dosage: 800 MG, TID
     Route: 048
     Dates: start: 20120625
  3. PEG-INTRON [Suspect]
     Dosage: UNK, UNKNOWN

REACTIONS (4)
  - HEADACHE [None]
  - CHEST PAIN [None]
  - SUICIDAL IDEATION [None]
  - CHEST DISCOMFORT [None]
